FAERS Safety Report 8212760-2 (Version None)
Quarter: 2012Q1

REPORT INFORMATION
  Report Type: 
  Country: None (occurrence: None)
  Receive Date: 20120229
  Receipt Date: 20110425
  Transmission Date: 20120608
  Serious: Yes (Other)
  Sender: FDA-Public Use
  Company Number: US-JNJFOC-20110402932

PATIENT
  Age: 10 Year
  Sex: Female
  Weight: 37.6 kg

DRUGS (1)
  1. IBUPROFEN [Suspect]
     Indication: TEMPOROMANDIBULAR JOINT SYNDROME
     Dosage: ORAL
     Route: 048
     Dates: start: 20010101

REACTIONS (5)
  - DRUG HYPERSENSITIVITY [None]
  - ANAPHYLACTIC SHOCK [None]
  - DYSPNOEA [None]
  - URTICARIA [None]
  - HYPOTHERMIA [None]
